FAERS Safety Report 9484600 (Version 2)
Quarter: 2013Q3

REPORT INFORMATION
  Report Type: Spontaneous
  Country: CA (occurrence: CA)
  Receive Date: 20130828
  Receipt Date: 20130828
  Transmission Date: 20140515
  Serious: Yes (Hospitalization, Other)
  Sender: FDA-Public Use
  Company Number: CA-AMGEN-KDL257326

PATIENT
  Age: 60 Year
  Sex: Female
  Weight: 62.7 kg

DRUGS (2)
  1. ENBREL [Suspect]
     Indication: RHEUMATOID ARTHRITIS
     Dosage: 50 MG, QWK
     Route: 058
     Dates: start: 20070921, end: 201001
  2. COLCHICINE [Concomitant]
     Dosage: UNK UNK, PRN

REACTIONS (5)
  - Pericardial disease [Unknown]
  - Oedema mouth [Unknown]
  - Dyspnoea [Recovering/Resolving]
  - Bronchitis chronic [Unknown]
  - Pneumonia [Unknown]
